FAERS Safety Report 24201783 (Version 1)
Quarter: 2024Q3

REPORT INFORMATION
  Report Type: Spontaneous
  Country: US (occurrence: US)
  Receive Date: 20240812
  Receipt Date: 20240812
  Transmission Date: 20241016
  Serious: Yes (Life-Threatening, Other)
  Sender: BOEHRINGER INGELHEIM
  Company Number: US-BoehringerIngelheim-2024-BI-044839

PATIENT
  Sex: Male

DRUGS (1)
  1. SPIRIVA RESPIMAT [Suspect]
     Active Substance: TIOTROPIUM BROMIDE
     Indication: Chronic obstructive pulmonary disease

REACTIONS (8)
  - Prostate cancer recurrent [Not Recovered/Not Resolved]
  - Prostate cancer metastatic [Unknown]
  - Metastases to liver [Unknown]
  - Metastases to kidney [Unknown]
  - Metastases to lymph nodes [Unknown]
  - Tooth loss [Unknown]
  - Dyspnoea [Unknown]
  - Dry mouth [Unknown]
